FAERS Safety Report 6065160-8 (Version None)
Quarter: 2009Q1

REPORT INFORMATION
  Report Type: 
  Country: None (occurrence: None)
  Receive Date: 20090130
  Receipt Date: 20090120
  Transmission Date: 20090719
  Serious: Yes (Hospitalization)
  Sender: FDA-Public Use
  Company Number: 2008-03180

PATIENT
  Age: 66 Year
  Sex: Male
  Weight: 84 kg

DRUGS (15)
  1. VELCADE [Suspect]
     Indication: MULTIPLE MYELOMA
     Dosage: INTRAVENOUS
     Route: 042
     Dates: start: 20080606
  2. DEXAMETHASONE TAB [Suspect]
     Indication: MULTIPLE MYELOMA
     Dosage: UNK UNK ORAL
     Route: 048
     Dates: start: 20080606
  3. LIPITOR [Concomitant]
  4. FOLIC ACID [Concomitant]
  5. ONDANSETRON HCL [Concomitant]
  6. AMIODARONE HCL [Concomitant]
  7. VANCOMYCIN [Concomitant]
  8. AMPICILLIN [Concomitant]
  9. COLOXYL WITH SENNA (SENNOAIDE A+B, DOCUSATE SODIUM) [Concomitant]
  10. MAGMIN (MAGNESIUM ASPARTATE) [Concomitant]
  11. ACETAMINOPHEN [Concomitant]
  12. LACTULOSE [Concomitant]
  13. AMOXICILLIN [Concomitant]
  14. METOPROLOL TARTRATE [Concomitant]
  15. ESOMPRAZOLE [Concomitant]

REACTIONS (7)
  - ATRIAL FIBRILLATION [None]
  - FEBRILE NEUTROPENIA [None]
  - HAEMORRHOIDS [None]
  - ILEUS PARALYTIC [None]
  - PANCYTOPENIA [None]
  - PLATELET COUNT DECREASED [None]
  - X-RAY ABNORMAL [None]
